FAERS Safety Report 11191792 (Version 1)
Quarter: 2015Q2

REPORT INFORMATION
  Report Type: Spontaneous
  Country: GB (occurrence: None)
  Receive Date: 20150612
  Receipt Date: 20150612
  Transmission Date: 20150821
  Serious: Yes (Hospitalization)
  Sender: FDA-Public Use
  Company Number: NL01PV15_39120

PATIENT
  Age: 83 Year

DRUGS (9)
  1. UNKNOWN (TAMSULOSIN) UNKNOWN [Suspect]
     Active Substance: TAMSULOSIN
     Route: 048
  2. UNKNOWN (BICALUTAMIDE) [Concomitant]
  3. PROCHLORPERAZINE (PROCHLORPERAZINE) [Suspect]
     Active Substance: PROCHLORPERAZINE
     Route: 048
  4. ATORVASTATIN [Concomitant]
     Active Substance: ATORVASTATIN
  5. FINASTERIDE. [Concomitant]
     Active Substance: FINASTERIDE
  6. ASPIRIN (ACETYLSALICYLIC ACID) [Concomitant]
     Active Substance: ASPIRIN
  7. LANSOPRAZOLE. [Concomitant]
     Active Substance: LANSOPRAZOLE
  8. PARACETAMOL [Concomitant]
     Active Substance: ACETAMINOPHEN
  9. UNKNOWN (OXYBUTYNIN) [Concomitant]

REACTIONS (6)
  - Orthostatic hypotension [None]
  - Tremor [None]
  - Extrapyramidal disorder [None]
  - Dizziness [None]
  - Syncope [None]
  - Parkinsonism [None]
